FAERS Safety Report 24338047 (Version 1)
Quarter: 2024Q3

REPORT INFORMATION
  Report Type: Report from Study
  Country: CA (occurrence: CA)
  Receive Date: 20240919
  Receipt Date: 20240919
  Transmission Date: 20241016
  Serious: Yes (Other)
  Sender: RANBAXY
  Company Number: CA-SUN PHARMACEUTICAL INDUSTRIES LTD-2024R1-451403

PATIENT
  Sex: Female

DRUGS (2)
  1. TILDRAKIZUMAB [Suspect]
     Active Substance: TILDRAKIZUMAB
     Indication: Psoriasis
     Dosage: UNK (100 MG, WK 0,4,12)
     Route: 058
     Dates: start: 20240515
  2. TILDRAKIZUMAB [Suspect]
     Active Substance: TILDRAKIZUMAB
     Dosage: 100 MILLIGRAM, Q8WEEKS
     Route: 058

REACTIONS (3)
  - Cellulitis [Unknown]
  - Off label use [Unknown]
  - Drug ineffective [Unknown]
